FAERS Safety Report 12365124 (Version 1)
Quarter: 2016Q2

REPORT INFORMATION
  Report Type: Not Available
  Country: US (occurrence: US)
  Receive Date: 20160513
  Receipt Date: 20160513
  Transmission Date: 20160815
  Serious: Yes (Life-Threatening, Hospitalization)
  Sender: FDA-Public Use
  Company Number: US-PARAGONBIOTECK-2016-US-003294

PATIENT
  Age: 6 Week
  Sex: Female

DRUGS (2)
  1. PHENYLEPHRINE HYDROCHLORIDE OPHTHALMIC [Suspect]
     Active Substance: PHENYLEPHRINE HYDROCHLORIDE
     Dosage: 1 DROP IN EACH EYE
  2. TROPICAMIDE 1% OPHTHALMIC SOLUTION [Suspect]
     Active Substance: TROPICAMIDE
     Dosage: 1 DROP IN EACH EYE

REACTIONS (5)
  - Unresponsive to stimuli [Recovered/Resolved]
  - Cardio-respiratory arrest [Unknown]
  - Pulse absent [Unknown]
  - Cyanosis [Recovered/Resolved]
  - Apnoea [Unknown]
